FAERS Safety Report 7060309 (Version 3)
Quarter: 2013Q1

REPORT INFORMATION
  Report Type: Spontaneous
  Country: US (occurrence: None)
  Receive Date: 20090716
  Receipt Date: 20130116
  Transmission Date: 20140127
  Serious: Yes (Death, Hospitalization)
  Sender: FDA-Public Use
  Company Number: 006939

PATIENT
  Sex: Male

DRUGS (1)
  1. SAMSCA (TOLVAPTAN) TABLET [Suspect]
     Indication: HYPONATRAEMIA
     Dosage: ORAL
     Route: 048

REACTIONS (4)
  - Septic shock [None]
  - Blood sodium increased [None]
  - Medication error [None]
  - Leukopenia [None]
